FAERS Safety Report 8475139-4 (Version None)
Quarter: 2012Q2

REPORT INFORMATION
  Report Type: 
  Country: None (occurrence: None)
  Receive Date: 20120622
  Receipt Date: 20120607
  Transmission Date: 20120825
  Serious: Yes (Hospitalization)
  Sender: FDA-Public Use
  Company Number: 2012-00896

PATIENT
  Age: 41 Year
  Sex: Female

DRUGS (3)
  1. SULFAMETHOXAZOLE AND TRIMETHOPRIM [Suspect]
     Indication: PNEUMOCYSTIS JIROVECI PNEUMONIA
     Dosage: 1728 MG (864 MG, 2 IN 1 D), INTRAVENOUS
     Route: 042
     Dates: start: 20120504
  2. CEFTRIAXONE [Suspect]
     Indication: PRODUCT USED FOR UNKNOWN INDICATION
     Dosage: INTRAVENOUS
     Route: 042
     Dates: start: 20120504
  3. IRON (FERROUS SULPHATE) (UNKNOWN) [Concomitant]

REACTIONS (3)
  - ACUTE PSYCHOSIS [None]
  - AGGRESSION [None]
  - CONFUSIONAL STATE [None]
